FAERS Safety Report 20033835 (Version 1)
Quarter: 2021Q4

REPORT INFORMATION
  Report Type: Spontaneous
  Country: US (occurrence: US)
  Receive Date: 20211104
  Receipt Date: 20211104
  Transmission Date: 20220304
  Serious: Yes (Hospitalization)
  Sender: FDA-Public Use
  Company Number: US-PFIZER INC-202101459964

PATIENT
  Age: 51 Year
  Sex: Female
  Weight: 72.562 kg

DRUGS (5)
  1. IBRANCE [Suspect]
     Active Substance: PALBOCICLIB
     Indication: Breast cancer female
     Dosage: 125 MG, 1X/DAY (1 DAILY FOR 21 DAYS)
     Route: 048
     Dates: start: 202010
  2. RINVOQ [Concomitant]
     Active Substance: UPADACITINIB
     Dosage: 15 MG (ER 24H)
  3. NEXIUM I.V. [Concomitant]
     Active Substance: ESOMEPRAZOLE SODIUM
     Dosage: 10 MG (10 MG SUSPDR PKT)
  4. CELEBREX [Concomitant]
     Active Substance: CELECOXIB
     Dosage: 100 MG
  5. EXEMESTANE [Concomitant]
     Active Substance: EXEMESTANE
     Dosage: 25 MG

REACTIONS (5)
  - Kidney infection [Unknown]
  - Escherichia infection [Unknown]
  - White blood cell count decreased [Unknown]
  - Oral pain [Unknown]
  - Aphthous ulcer [Unknown]
